FAERS Safety Report 16336626 (Version 2)
Quarter: 2019Q3

REPORT INFORMATION
  Report Type: Spontaneous
  Country: FR (occurrence: FR)
  Receive Date: 20190521
  Receipt Date: 20190712
  Transmission Date: 20191004
  Serious: Yes (Death)
  Sender: FDA-Public Use
  Company Number: FR-ROCHE-2322462

PATIENT
  Age: 83 Year
  Sex: Male

DRUGS (13)
  1. UVEDOSE [Concomitant]
     Active Substance: CHOLECALCIFEROL
  2. CORTANCYL [Concomitant]
     Active Substance: PREDNISONE
  3. LAROXYL [Concomitant]
     Active Substance: AMITRIPTYLINE HYDROCHLORIDE
     Route: 048
  4. LANSOPRAZOLE. [Concomitant]
     Active Substance: LANSOPRAZOLE
  5. TANGANIL [Concomitant]
     Active Substance: ACETYLLEUCINE
     Route: 065
  6. VENLAFAXINE [Concomitant]
     Active Substance: VENLAFAXINE HYDROCHLORIDE
     Route: 048
  7. TADENAN [Concomitant]
     Active Substance: PYGEUM
  8. MOVICOL [Concomitant]
     Active Substance: POLYETHYLENE GLYCOL 3350\POTASSIUM CHLORIDE\SODIUM BICARBONATE\SODIUM CHLORIDE
  9. INNOHEP [Concomitant]
     Active Substance: TINZAPARIN SODIUM
  10. TAHOR [Concomitant]
     Active Substance: ATORVASTATIN CALCIUM
  11. DOLIPRANE [Concomitant]
     Active Substance: ACETAMINOPHEN
  12. RITUXIMAB. [Suspect]
     Active Substance: RITUXIMAB
     Indication: OTITIS EXTERNA
     Route: 041
     Dates: start: 20190502, end: 20190502
  13. CACIT [CALCIUM CARBONATE] [Concomitant]
     Active Substance: CALCIUM CARBONATE

REACTIONS (1)
  - Cardio-respiratory arrest [Fatal]
